FAERS Safety Report 4646180-4 (Version None)
Quarter: 2005Q2

REPORT INFORMATION
  Report Type: 
  Country: None (occurrence: None)
  Receive Date: 20050422
  Receipt Date: 20050422
  Transmission Date: 20051028
  Serious: Yes (Hospitalization)
  Sender: FDA-Public Use
  Company Number: None

PATIENT
  Age: 45 Year
  Sex: Female
  Weight: 80.5 kg

DRUGS (3)
  1. TRAMADOL   100 MG    ORTHO-MCNEAL [Suspect]
     Indication: PAIN
     Dosage: 100 MG   BID   ORAL
     Route: 048
     Dates: start: 20050313, end: 20050314
  2. ZYPREXA [Suspect]
     Indication: HALLUCINATION
     Dosage: 5 MG    AT BEDTIME   ORAL
     Route: 048
     Dates: start: 20000314, end: 20050314
  3. PROZAC [Concomitant]

REACTIONS (1)
  - CONVULSION [None]
